FAERS Safety Report 15279834 (Version 1)
Quarter: 2018Q3

REPORT INFORMATION
  Report Type: Spontaneous
  Country: US (occurrence: US)
  Receive Date: 20180815
  Receipt Date: 20180815
  Transmission Date: 20181010
  Serious: No
  Sender: FDA-Public Use
  Company Number: US-ASTRAZENECA-2018SE95336

PATIENT
  Age: 24631 Day
  Sex: Female
  Weight: 136.1 kg

DRUGS (3)
  1. BYDUREON BCISE [Suspect]
     Active Substance: EXENATIDE
     Indication: TYPE 2 DIABETES MELLITUS
     Route: 058
     Dates: start: 20180521
  2. METFORMIN [Concomitant]
     Active Substance: METFORMIN HYDROCHLORIDE
  3. VICTOZA [Concomitant]
     Active Substance: LIRAGLUTIDE

REACTIONS (6)
  - Medication error [Recovered/Resolved]
  - Circumstance or information capable of leading to medication error [Unknown]
  - Injection site haemorrhage [Recovered/Resolved]
  - Injection site injury [Not Recovered/Not Resolved]
  - Injection site bruising [Not Recovered/Not Resolved]
  - Device leakage [Unknown]

NARRATIVE: CASE EVENT DATE: 20180521
